FAERS Safety Report 17533253 (Version 1)
Quarter: 2020Q1

REPORT INFORMATION
  Report Type: Report from Study
  Country: EG (occurrence: EG)
  Receive Date: 20200312
  Receipt Date: 20200312
  Transmission Date: 20200409
  Serious: Yes (Other)
  Sender: FDA-Public Use
  Company Number: EG-JNJFOC-20200311240

PATIENT
  Age: 59 Year
  Sex: Female

DRUGS (3)
  1. REMICADE [Suspect]
     Active Substance: INFLIXIMAB
     Indication: PRODUCT USED FOR UNKNOWN INDICATION
     Dosage: LOADING DOSE , 0,2,6 WEEKS, MAINTENANCE DOSE: EVERY 2 MONTHS
     Route: 042
     Dates: start: 201707, end: 201708
  2. VENTOLIN [Concomitant]
     Active Substance: ALBUTEROL SULFATE
  3. PULMICORT TURBUHALER [Concomitant]
     Active Substance: BUDESONIDE

REACTIONS (1)
  - Asthma [Unknown]
